FAERS Safety Report 9525717 (Version 1)
Quarter: 2013Q1

REPORT INFORMATION
  Report Type: Spontaneous
  Country: US (occurrence: None)
  Receive Date: 20130314
  Receipt Date: 20130314
  Transmission Date: 20140127
  Serious: No
  Sender: FDA-Public Use
  Company Number: 1210USA002166

PATIENT
  Sex: Male

DRUGS (3)
  1. VICTRELIS (BOCEPREVIR) CAPSULE, 200 MG [Suspect]
     Indication: CHRONIC HEPATITIS C
     Route: 048
     Dates: start: 20121008, end: 20121207
  2. PEGASYS (PEGINTERFERON ALFA-2A) [Suspect]
     Indication: CHRONIC HEPATITIS C
     Dates: start: 20120909
  3. RIBASPHERE (RIBAVIRIN) [Suspect]
     Indication: CHRONIC HEPATITIS C
     Dates: start: 20120910

REACTIONS (2)
  - Arthralgia [None]
  - No therapeutic response [None]
